FAERS Safety Report 19433157 (Version 2)
Quarter: 2021Q4

REPORT INFORMATION
  Report Type: Report from Study
  Country: CA (occurrence: CA)
  Receive Date: 20210618
  Receipt Date: 20211207
  Transmission Date: 20220303
  Serious: Yes (Other)
  Sender: FDA-Public Use
  Company Number: CA-JNJFOC-20210603896

PATIENT
  Age: 29 Year
  Sex: Female
  Weight: 52.210 kg

DRUGS (2)
  1. STELARA [Suspect]
     Active Substance: USTEKINUMAB
     Indication: Crohn^s disease
     Dosage: ON 08-JUN-2021, THE PATIENT RECEIVED 35TH 390 MILLIGRAM USTEKINUMAB INJECTION.
     Route: 058
     Dates: start: 20140505
  2. STELARA [Suspect]
     Active Substance: USTEKINUMAB
     Dosage: IV RE-INDUCTION
     Route: 042
     Dates: start: 20210608

REACTIONS (2)
  - Intestinal stenosis [Unknown]
  - Crohn^s disease [Unknown]
